FAERS Safety Report 21105594 (Version 1)
Quarter: 2022Q3

REPORT INFORMATION
  Report Type: Spontaneous
  Country: US (occurrence: US)
  Receive Date: 20220720
  Receipt Date: 20220720
  Transmission Date: 20221026
  Serious: Yes (Other)
  Sender: FDA-Public Use
  Company Number: US-SA-SAC20220719000251

PATIENT
  Age: 59 Year
  Sex: Female

DRUGS (11)
  1. DUPIXENT [Suspect]
     Active Substance: DUPILUMAB
     Indication: Asthma
     Dosage: 300 MG, QOW
     Route: 058
     Dates: start: 20211001
  2. BIOTIN [Concomitant]
     Active Substance: BIOTIN
  3. FLONASE ALLERGY RELIEF [Concomitant]
     Active Substance: FLUTICASONE PROPIONATE
  4. GABAPENTIN [Concomitant]
     Active Substance: GABAPENTIN
  5. OLOPATADINE [Concomitant]
     Active Substance: OLOPATADINE
  6. PROPRANOLOL [Concomitant]
     Active Substance: PROPRANOLOL HYDROCHLORIDE
  7. TRAMADOL HCL [Concomitant]
     Active Substance: TRAMADOL HYDROCHLORIDE
  8. VITAMIN B12 [Concomitant]
     Active Substance: CYANOCOBALAMIN
  9. VITAMIN C [Concomitant]
     Active Substance: ASCORBIC ACID
  10. VITAMIN D NOS [Concomitant]
     Active Substance: VITAMIN D NOS
  11. MAGNESIUM [Concomitant]
     Active Substance: MAGNESIUM

REACTIONS (4)
  - COVID-19 pneumonia [Not Recovered/Not Resolved]
  - Dyspnoea [Not Recovered/Not Resolved]
  - Asthma [Not Recovered/Not Resolved]
  - Dysphonia [Not Recovered/Not Resolved]

NARRATIVE: CASE EVENT DATE: 20211201
